FAERS Safety Report 15498557 (Version 1)
Quarter: 2018Q4

REPORT INFORMATION
  Report Type: Spontaneous
  Country: US (occurrence: US)
  Receive Date: 20181005
  Receipt Date: 20181005
  Transmission Date: 20190205
  Serious: No
  Sender: FDA-Public Use
  Company Number: None

PATIENT

DRUGS (1)
  1. GENTEAL TEARS (MODERATE) [Suspect]
     Active Substance: DEXTRAN 70\GLYCERIN\HYPROMELLOSES
     Indication: DRY EYE
     Dosage: ?          QUANTITY:0.5 FL OZ;OTHER ROUTE:DROPPER BOTTLE - 1 DROP IN BAD EYE?
     Dates: end: 20180919

REACTIONS (2)
  - Instillation site pain [None]
  - Eye irritation [None]

NARRATIVE: CASE EVENT DATE: 20180919
